FAERS Safety Report 25023864 (Version 1)
Quarter: 2025Q1

REPORT INFORMATION
  Report Type: Spontaneous
  Country: US (occurrence: US)
  Receive Date: 20250228
  Receipt Date: 20250228
  Transmission Date: 20250409
  Serious: No
  Sender: PRIMUS PHARMACEUTICALS
  Company Number: US-PRIMUS-2024-US-037967

PATIENT
  Age: 61 Year
  Sex: Male

DRUGS (4)
  1. SERNIVO [Suspect]
     Active Substance: BETAMETHASONE DIPROPIONATE
     Indication: Product used for unknown indication
     Route: 061
  2. NEXLIZET [Concomitant]
     Active Substance: BEMPEDOIC ACID\EZETIMIBE
  3. JARDIANCE [Concomitant]
     Active Substance: EMPAGLIFLOZIN
  4. VALSARTAN [Concomitant]
     Active Substance: VALSARTAN

REACTIONS (2)
  - Application site pain [Recovered/Resolved]
  - Neuralgia [Unknown]
